FAERS Safety Report 7839916-2 (Version None)
Quarter: 2011Q4

REPORT INFORMATION
  Report Type: 
  Country: None (occurrence: None)
  Receive Date: 20111025
  Receipt Date: 20111017
  Transmission Date: 20120403
  Serious: No
  Sender: FDA-Public Use
  Company Number: US-BIOGENIDEC-2011BI039551

PATIENT
  Age: 44 Year
  Sex: Female

DRUGS (2)
  1. TYSABRI [Suspect]
     Indication: MULTIPLE SCLEROSIS
     Route: 042
     Dates: start: 20100331
  2. TYSABRI [Suspect]
     Route: 042
     Dates: start: 20090212, end: 20090831

REACTIONS (4)
  - NASOPHARYNGITIS [None]
  - HEADACHE [None]
  - MENTAL IMPAIRMENT [None]
  - FATIGUE [None]
